FAERS Safety Report 5095679-8 (Version None)
Quarter: 2006Q3

REPORT INFORMATION
  Report Type: 
  Country: None (occurrence: None)
  Receive Date: 20060731
  Receipt Date: 20060428
  Transmission Date: 20061208
  Serious: No
  Sender: FDA-Public Use
  Company Number: 2006PV012968

PATIENT
  Age: 30 Year
  Sex: Female
  Weight: 181.4388 kg

DRUGS (1)
  1. BYETTA [Suspect]
     Indication: DIABETES MELLITUS NON-INSULIN-DEPENDENT
     Dosage: 10 MCG; SC, SEE IMAGE
     Route: 058
     Dates: end: 20060401

REACTIONS (1)
  - THYROID DISORDER [None]
